FAERS Safety Report 7379646-7 (Version None)
Quarter: 2011Q1

REPORT INFORMATION
  Report Type: 
  Country: None (occurrence: None)
  Receive Date: 20110329
  Receipt Date: 20110323
  Transmission Date: 20110831
  Serious: No
  Sender: FDA-Public Use
  Company Number: US-PFIZER INC-2011065162

PATIENT
  Sex: Female
  Weight: 90.703 kg

DRUGS (3)
  1. ORTHO CYCLEN-28 [Concomitant]
  2. EFFEXOR [Suspect]
     Indication: ANXIETY
  3. EFFEXOR [Suspect]
     Indication: DEPRESSION
     Dosage: 75 MG, 1X/DAY
     Route: 048
     Dates: start: 20040401, end: 20101201

REACTIONS (1)
  - NAUSEA [None]
